FAERS Safety Report 10151890 (Version 1)
Quarter: 2014Q2

REPORT INFORMATION
  Report Type: Spontaneous
  Country: US (occurrence: US)
  Receive Date: 20140505
  Receipt Date: 20140505
  Transmission Date: 20141212
  Serious: Yes (Other)
  Sender: FDA-Public Use
  Company Number: US-BEH-2014042199

PATIENT
  Sex: Male

DRUGS (23)
  1. ZEMAIRA [Suspect]
     Indication: ALPHA-1 ANTI-TRYPSIN DEFICIENCY
     Dosage: 0.08 ML PER KG PER MIN; 5.8 ML PER MIN
     Route: 042
  2. DILTIAZEM 24 HR ER [Concomitant]
     Dosage: 24 HR ER
  3. PULMICORT [Concomitant]
     Dosage: 0.25 MG/2 ML
  4. OXYCODONE HCL [Concomitant]
  5. THEOPHYLLINE ER [Concomitant]
  6. ASPIRIN [Concomitant]
  7. XOPENEX [Concomitant]
     Dosage: 125 MG/3 ML
  8. PROAIR HFA [Concomitant]
     Route: 055
  9. DUONEB [Concomitant]
     Dosage: 0.5 MG-3 MG/3 ML SOLUTION
  10. ZITHROMAX [Concomitant]
  11. PREDNISONE [Concomitant]
  12. LORAZEPAM [Concomitant]
  13. OXYGEN [Concomitant]
  14. ALBUTEROL SULFATE HFA [Concomitant]
     Route: 055
  15. ARCAPTA NEOHALER [Concomitant]
  16. DIOVAN [Concomitant]
  17. POTASSIUM CHLORIDE [Concomitant]
  18. DEXILANT DR [Concomitant]
  19. LASIX [Concomitant]
  20. SINGULAIR [Concomitant]
  21. SPIRIVA [Concomitant]
  22. MAXAIR [Concomitant]
  23. BENADRYL [Concomitant]

REACTIONS (4)
  - Renal failure [Unknown]
  - Abdominal distension [Unknown]
  - Chromaturia [Unknown]
  - Urine output decreased [Unknown]
